FAERS Safety Report 8999103 (Version 2)
Quarter: 2013Q1

REPORT INFORMATION
  Report Type: Report from Study
  Country: DE (occurrence: DE)
  Receive Date: 20130103
  Receipt Date: 20130124
  Transmission Date: 20140127
  Serious: Yes (Other)
  Sender: FDA-Public Use
  Company Number: DE-JNJFOC-20121211736

PATIENT
  Age: 17 Year
  Sex: Male
  Weight: 75.5 kg

DRUGS (3)
  1. REMICADE [Suspect]
     Indication: CROHN^S DISEASE
     Route: 042
     Dates: start: 20060606
  2. 5-ASA [Concomitant]
     Route: 048
  3. OMEPRAZOLE [Concomitant]

REACTIONS (1)
  - Hepatic echinococciasis [Not Recovered/Not Resolved]
